FAERS Safety Report 6966151-2 (Version None)
Quarter: 2010Q3

REPORT INFORMATION
  Report Type: 
  Country: None (occurrence: None)
  Receive Date: 20100903
  Receipt Date: 20100830
  Transmission Date: 20110219
  Serious: Yes (Hospitalization, Other)
  Sender: FDA-Public Use
  Company Number: US-PURDUE-USA-2010-0046262

PATIENT
  Sex: Female

DRUGS (7)
  1. OXYCONTIN [Suspect]
     Indication: PAIN
     Dosage: 100 MG, Q8H
     Dates: start: 20030101
  2. NORCO [Concomitant]
     Indication: BREAKTHROUGH PAIN
  3. SOMA [Concomitant]
     Indication: BREAKTHROUGH PAIN
  4. DILAUDID [Concomitant]
     Indication: PAIN
     Route: 042
  5. REGLAN [Concomitant]
  6. DONNATAL [Concomitant]
  7. PROTONIX [Concomitant]

REACTIONS (6)
  - CARDIAC PACEMAKER INSERTION [None]
  - FALL [None]
  - INADEQUATE ANALGESIA [None]
  - PAIN [None]
  - SPINAL OPERATION [None]
  - UPPER LIMB FRACTURE [None]
